FAERS Safety Report 6441575-0 (Version None)
Quarter: 2009Q4

REPORT INFORMATION
  Report Type: 
  Country: None (occurrence: None)
  Receive Date: 20091116
  Receipt Date: 20091102
  Transmission Date: 20100525
  Serious: Yes (Life-Threatening, Other)
  Sender: FDA-Public Use
  Company Number: GB-AMGEN-US373056

PATIENT
  Age: 41 Year
  Sex: Female

DRUGS (5)
  1. ENBREL [Suspect]
     Indication: ANKYLOSING SPONDYLITIS
     Route: 058
     Dates: start: 20090902, end: 20090922
  2. LANSOPRAZOLE [Concomitant]
     Route: 048
  3. DICLOFENAC [Concomitant]
     Dosage: 75 MG (FREQUENCY UNKNOWN)
     Route: 048
  4. AMITRIPTYLINE HCL [Concomitant]
     Dosage: 100 MG (FREQUENCY UNKNOWN)
     Route: 048
  5. CO-CODAMOL [Concomitant]
     Dosage: UNKNOWN DOSE 4 TIMES DAILY
     Route: 048

REACTIONS (2)
  - ANAPHYLACTIC REACTION [None]
  - PAIN IN EXTREMITY [None]
